FAERS Safety Report 6326518-2 (Version None)
Quarter: 2009Q3

REPORT INFORMATION
  Report Type: 
  Country: None (occurrence: None)
  Receive Date: 20090825
  Receipt Date: 20071113
  Transmission Date: 20100115
  Serious: Yes (Hospitalization, Other)
  Sender: FDA-Public Use
  Company Number: US-ASTRAZENECA-2006UW22398

PATIENT
  Age: 581 Month
  Sex: Female
  Weight: 91 kg

DRUGS (15)
  1. SEROQUEL [Suspect]
     Indication: INSOMNIA
     Route: 048
     Dates: start: 20050101, end: 20051201
  2. SEROQUEL [Suspect]
     Indication: DEPRESSION
     Route: 048
     Dates: start: 20050101, end: 20051201
  3. SEROQUEL [Suspect]
     Dosage: 25-200 MG
     Route: 048
     Dates: start: 20051115, end: 20060915
  4. SEROQUEL [Suspect]
     Dosage: 25-200 MG
     Route: 048
     Dates: start: 20051115, end: 20060915
  5. METHADONE [Concomitant]
     Dates: start: 20060101
  6. GLUCOTROL [Concomitant]
     Route: 048
     Dates: start: 20060113
  7. LANTUS [Concomitant]
     Dosage: 40 UNITS, QHS
     Dates: start: 20060113
  8. VASOTEC [Concomitant]
     Route: 048
     Dates: start: 20060113
  9. STARLIX [Concomitant]
     Route: 048
     Dates: start: 20060113
  10. LYRICA [Concomitant]
     Route: 048
     Dates: start: 20060113
  11. CYMBALTA [Concomitant]
     Dosage: 30-60 MG
     Dates: start: 20051115
  12. TEMAZEPAM [Concomitant]
     Dosage: 1 MG TID PRN
     Dates: start: 20060113
  13. NARCO [Concomitant]
     Dates: start: 20051115
  14. PROZAC [Concomitant]
     Dosage: 14-60 MG
     Dates: start: 19980101
  15. CLONAZEPAM [Concomitant]
     Dosage: 1 MG 3 AT HS
     Dates: start: 20051115

REACTIONS (5)
  - DIABETES MELLITUS [None]
  - DIABETIC KETOACIDOSIS [None]
  - DIABETIC NEUROPATHY [None]
  - HYPERGLYCAEMIC HYPEROSMOLAR NONKETOTIC SYNDROME [None]
  - TYPE 2 DIABETES MELLITUS [None]
